FAERS Safety Report 8159692-6 (Version None)
Quarter: 2012Q1

REPORT INFORMATION
  Report Type: 
  Country: None (occurrence: None)
  Receive Date: 20120223
  Receipt Date: 20120215
  Transmission Date: 20120608
  Serious: Yes (Other)
  Sender: FDA-Public Use
  Company Number: US-BAYER-2011-012756

PATIENT
  Age: 21 Year
  Sex: Female

DRUGS (12)
  1. FLAGYL [Concomitant]
     Dosage: 500 MG, TID
  2. ZOFRAN [Concomitant]
     Dosage: 8 MG, Q6WK
     Route: 048
  3. KEFLEX [Concomitant]
     Dosage: 500 MG, QID
  4. BENTYL [Concomitant]
     Dosage: 10 MG, UNK
     Route: 048
  5. PRILOSEC [Concomitant]
  6. DICLOFENAC POTASSIUM [Concomitant]
     Indication: PAIN
     Dosage: 50 MG, UNK
  7. DROSPIRENONE AND ETHINYL ESTRADIOL [Suspect]
     Indication: CONTRACEPTION
     Dosage: UNK
     Dates: start: 20090101, end: 20090301
  8. NITROFUR-C [Concomitant]
     Dosage: 100 MG, BID
     Dates: start: 20090316
  9. LORTAB [Concomitant]
     Route: 048
  10. IMODIUM [Concomitant]
  11. CHERATUSSIN AC [Concomitant]
     Dosage: UNK
  12. ACETAMINOPHEN [Concomitant]
     Dosage: UNK
     Dates: start: 20090201

REACTIONS (6)
  - THROMBOPHLEBITIS SUPERFICIAL [None]
  - INJURY [None]
  - GALLBLADDER INJURY [None]
  - PAIN [None]
  - DEEP VEIN THROMBOSIS [None]
  - BILIARY COLIC [None]
